FAERS Safety Report 25387010 (Version 1)
Quarter: 2025Q2

REPORT INFORMATION
  Report Type: Spontaneous
  Country: US (occurrence: None)
  Receive Date: 20250529
  Receipt Date: 20250529
  Transmission Date: 20250717
  Serious: No
  Sender: FDA-CTU
  Company Number: None

PATIENT
  Age: 60 Year
  Sex: Male

DRUGS (1)
  1. WELIREG [Suspect]
     Active Substance: BELZUTIFAN
     Dosage: FREQUENCY : DAILY;?
     Route: 048
     Dates: start: 20250402

REACTIONS (3)
  - Haemoglobin decreased [None]
  - Hypoxia [None]
  - Lung infiltration [None]

NARRATIVE: CASE EVENT DATE: 20250528
